FAERS Safety Report 14033355 (Version 2)
Quarter: 2019Q2

REPORT INFORMATION
  Report Type: Spontaneous
  Country: FR (occurrence: FR)
  Receive Date: 20171003
  Receipt Date: 20190618
  Transmission Date: 20190711
  Serious: Yes (Other)
  Sender: FDA-Public Use
  Company Number: FR-MERCK KGAA-2028564

PATIENT
  Age: 70 Year
  Sex: Female
  Weight: 70 kg

DRUGS (1)
  1. EUTHYROX [Suspect]
     Active Substance: LEVOTHYROXINE SODIUM
     Indication: THYROID DISORDER
     Route: 048

REACTIONS (10)
  - Fatigue [Recovering/Resolving]
  - Constipation [Recovering/Resolving]
  - Blood thyroid stimulating hormone decreased [Recovering/Resolving]
  - Diffuse alopecia [Recovering/Resolving]
  - Gait disturbance [Recovering/Resolving]
  - Vertigo [Recovering/Resolving]
  - Vision blurred [Recovering/Resolving]
  - Tachycardia [Recovering/Resolving]
  - Insomnia [Recovering/Resolving]
  - Muscle spasms [Recovering/Resolving]

NARRATIVE: CASE EVENT DATE: 20170417
